FAERS Safety Report 4293731-8 (Version None)
Quarter: 2004Q1

REPORT INFORMATION
  Report Type: 
  Country: None (occurrence: None)
  Receive Date: 20040126
  Receipt Date: 20031028
  Transmission Date: 20041129
  Serious: No
  Sender: FDA-Public Use
  Company Number: USA031050233

PATIENT
  Age: 81 Year
  Sex: Female

DRUGS (3)
  1. FORTEO [Suspect]
     Indication: OSTEOPOROSIS
     Dosage: 20 UG/DAY
     Dates: start: 20030601
  2. LOTREL [Concomitant]
  3. LEXAPRO [Concomitant]

REACTIONS (5)
  - ASTHENIA [None]
  - BLOOD PRESSURE FLUCTUATION [None]
  - DEPRESSION [None]
  - HOT FLUSH [None]
  - MUSCULAR WEAKNESS [None]
